FAERS Safety Report 5530169-7 (Version None)
Quarter: 2007Q4

REPORT INFORMATION
  Report Type: 
  Country: None (occurrence: None)
  Receive Date: 20071130
  Receipt Date: 20071118
  Transmission Date: 20080405
  Serious: Yes (Hospitalization, Other)
  Sender: FDA-Public Use
  Company Number: DE-BAYER-200717029GPV

PATIENT
  Age: 59 Year
  Sex: Female
  Weight: 105 kg

DRUGS (4)
  1. AVELOX [Suspect]
     Indication: RESPIRATORY TRACT INFECTION
     Route: 048
     Dates: start: 20071004, end: 20071004
  2. L-THYROXIN [Concomitant]
     Indication: GOITRE
     Dosage: TOTAL DAILY DOSE: 150 MG
     Route: 065
  3. METOPROLOL SUCCINATE [Concomitant]
     Indication: HYPERTENSION
     Route: 065
  4. JODETTEN [Concomitant]
     Indication: GOITRE
     Dosage: TOTAL DAILY DOSE: 100 MG
     Route: 065

REACTIONS (7)
  - ANAPHYLACTIC REACTION [None]
  - CARDIOVASCULAR DISORDER [None]
  - DYSPNOEA [None]
  - NAUSEA [None]
  - PRURITUS [None]
  - URTICARIA [None]
  - VOMITING [None]
